FAERS Safety Report 23169516 (Version 2)
Quarter: 2023Q4

REPORT INFORMATION
  Report Type: Other
  Country: PK (occurrence: None)
  Receive Date: 20231110
  Receipt Date: 20231114
  Transmission Date: 20240109
  Serious: Yes (Death, Other)
  Sender: FDA-Public Use
  Company Number: PK-ROCHE-3455138

PATIENT
  Age: 55 Year
  Sex: Male

DRUGS (1)
  1. RITUXIMAB [Suspect]
     Active Substance: RITUXIMAB
     Indication: Diffuse large B-cell lymphoma
     Dosage: FOR 6 CYCLES
     Route: 041
     Dates: start: 20230802

REACTIONS (2)
  - Cardiac arrest [Fatal]
  - Pulmonary oedema [Unknown]

NARRATIVE: CASE EVENT DATE: 20231004
